FAERS Safety Report 10296551 (Version 1)
Quarter: 2014Q3

REPORT INFORMATION
  Report Type: Spontaneous
  Country: FR (occurrence: FR)
  Receive Date: 20140710
  Receipt Date: 20140710
  Transmission Date: 20150326
  Serious: Yes (Hospitalization, Other)
  Sender: FDA-Public Use
  Company Number: FR-PFIZER INC-2014188967

PATIENT
  Age: 90 Year
  Sex: Female

DRUGS (6)
  1. SERESTA [Concomitant]
     Active Substance: OXAZEPAM
     Dosage: 10 MG, 1X/DAY IN THE EVENING
     Route: 048
  2. ZOLOFT [Suspect]
     Active Substance: SERTRALINE HYDROCHLORIDE
     Dosage: 25 MG, UNK
     Route: 048
  3. ARIXTRA [Suspect]
     Active Substance: FONDAPARINUX SODIUM
     Indication: PHLEBITIS
     Dosage: UNK
     Route: 058
     Dates: start: 20140526, end: 20140602
  4. CARDENSIEL [Concomitant]
     Active Substance: BISOPROLOL FUMARATE
     Dosage: 5 MG, 1X/DAY IN THE MORNING
     Route: 048
  5. COUMADINE [Suspect]
     Active Substance: WARFARIN SODIUM
     Dosage: 2 TABLETS OF 2 MG, 1X/DAY
     Route: 048
     Dates: start: 20140528, end: 20140530
  6. ATACAND [Concomitant]
     Active Substance: CANDESARTAN CILEXETIL
     Dosage: 4 MG, 1X/DAY
     Route: 048

REACTIONS (6)
  - Anaemia [Not Recovered/Not Resolved]
  - Thrombophlebitis [Unknown]
  - Blister [Unknown]
  - Pain [Unknown]
  - Haematoma [Not Recovered/Not Resolved]
  - Tachycardia [Unknown]

NARRATIVE: CASE EVENT DATE: 20140526
